FAERS Safety Report 13200111 (Version 4)
Quarter: 2017Q1

REPORT INFORMATION
  Report Type: Spontaneous
  Country: IE (occurrence: IE)
  Receive Date: 20170208
  Receipt Date: 20170321
  Transmission Date: 20170428
  Serious: Yes (Hospitalization)
  Sender: FDA-Public Use
  Company Number: IE-BIOMARINAP-IE-2017-112766

PATIENT
  Age: 13 Year
  Sex: Male

DRUGS (1)
  1. ALDURAZYME [Suspect]
     Active Substance: LARONIDASE
     Indication: MUCOPOLYSACCHARIDOSIS I
     Dosage: 4000 UNITS, QW
     Route: 041
     Dates: start: 20150428

REACTIONS (4)
  - Joint swelling [Recovering/Resolving]
  - Arthropathy [Recovering/Resolving]
  - Wound [Recovering/Resolving]
  - Procedural pain [Recovering/Resolving]
